FAERS Safety Report 18320751 (Version 1)
Quarter: 2020Q3

REPORT INFORMATION
  Report Type: Spontaneous
  Country: US (occurrence: US)
  Receive Date: 20200929
  Receipt Date: 20200929
  Transmission Date: 20201103
  Serious: No
  Sender: FDA-Public Use
  Company Number: US-AUROBINDO-AUR-APL-2020-034593

PATIENT
  Age: 55 Year
  Sex: Male

DRUGS (1)
  1. ARMODAFINIL 250 MG TABLETS [Suspect]
     Active Substance: ARMODAFINIL
     Indication: SLEEP APNOEA SYNDROME
     Dosage: 250 MILLIGRAM, (TAKE DAILY, AND SOMETIMES ONCE OR TWICE A WEEK AS NEEDED)
     Route: 065

REACTIONS (1)
  - Drug ineffective [Unknown]
